FAERS Safety Report 6981931-5 (Version None)
Quarter: 2010Q3

REPORT INFORMATION
  Report Type: 
  Country: None (occurrence: None)
  Receive Date: 20100914
  Receipt Date: 20091104
  Transmission Date: 20110219
  Serious: No
  Sender: FDA-Public Use
  Company Number: US-PFIZER INC-2009274754

PATIENT
  Sex: Male

DRUGS (5)
  1. LYRICA [Suspect]
     Indication: NEURALGIA
     Dosage: 25 MG, 2X/DAY
     Route: 048
     Dates: start: 20090911, end: 20090901
  2. HUMULIN 70/30 [Concomitant]
     Dosage: UNK
  3. ENALAPRIL MALEATE [Concomitant]
     Dosage: UNK
  4. ACETAMINOPHEN AND HYDROCODONE BITARTRATE [Concomitant]
     Dosage: 10/325 MG
  5. GLIPIZIDE [Concomitant]
     Dosage: UNK

REACTIONS (2)
  - COGNITIVE DISORDER [None]
  - VISUAL IMPAIRMENT [None]
